FAERS Safety Report 8387452-X (Version None)
Quarter: 2012Q2

REPORT INFORMATION
  Report Type: 
  Country: None (occurrence: None)
  Receive Date: 20120525
  Receipt Date: 20120517
  Transmission Date: 20120825
  Serious: Yes (Hospitalization)
  Sender: FDA-Public Use
  Company Number: PHHY2012LB042258

PATIENT
  Age: 74 Year
  Sex: Female

DRUGS (4)
  1. TIOTROPIUM [Concomitant]
  2. FLUTICASONE FUROATE [Concomitant]
  3. IMATINIB MESYLATE [Suspect]
     Indication: GASTROINTESTINAL CANCER METASTATIC
     Dosage: 400 MG,PER DAY
     Dates: start: 20110103, end: 20110825
  4. SALMETEROL [Concomitant]

REACTIONS (12)
  - GASTRIC ANTRAL VASCULAR ECTASIA [None]
  - PALLOR [None]
  - VITAMIN B12 DEFICIENCY [None]
  - HYPERHIDROSIS [None]
  - DIARRHOEA [None]
  - ANAEMIA [None]
  - GASTROINTESTINAL HAEMORRHAGE [None]
  - FATIGUE [None]
  - MELAENA [None]
  - DYSPNOEA [None]
  - ABDOMINAL PAIN [None]
  - MYALGIA [None]
